FAERS Safety Report 5723228-7 (Version None)
Quarter: 2008Q2

REPORT INFORMATION
  Report Type: 
  Country: None (occurrence: None)
  Receive Date: 20080430
  Receipt Date: 20080424
  Transmission Date: 20081010
  Serious: Yes (Other)
  Sender: FDA-Public Use
  Company Number: GB-ELI_LILLY_AND_COMPANY-GB200804006396

PATIENT
  Age: 50 Year
  Sex: Female

DRUGS (2)
  1. ZYPREXA [Suspect]
     Dosage: 7.5 MG, UNK
     Dates: start: 20080220, end: 20080307
  2. FLUPHENAZINE DECANOATE [Concomitant]

REACTIONS (1)
  - NEUTROPENIA [None]
